FAERS Safety Report 21266902 (Version 2)
Quarter: 2022Q3

REPORT INFORMATION
  Report Type: Spontaneous
  Country: FR (occurrence: FR)
  Receive Date: 20220829
  Receipt Date: 20220906
  Transmission Date: 20221027
  Serious: Yes (Hospitalization, Other)
  Sender: FDA-Public Use
  Company Number: None

PATIENT
  Age: 82 Year
  Sex: Male

DRUGS (12)
  1. LANSOPRAZOLE [Suspect]
     Active Substance: LANSOPRAZOLE
     Indication: Gastritis
     Dosage: 1 DOSAGE FORM, QD
     Route: 048
     Dates: end: 20220620
  2. PFIZER-BIONTECH COVID-19 VACCINE [Suspect]
     Active Substance: TOZINAMERAN
     Indication: COVID-19 immunisation
     Dosage: 30 MILLIGRAM
     Route: 030
  3. PINAVERIUM BROMIDE [Suspect]
     Active Substance: PINAVERIUM BROMIDE
     Indication: Diverticulum
     Dosage: 300 MILLIGRAM, QD
     Route: 048
     Dates: end: 20220618
  4. ZESTORETIC [Suspect]
     Active Substance: HYDROCHLOROTHIAZIDE\LISINOPRIL
     Indication: Hypertension
     Dosage: 20/12.5 MILLIGRAM, QD
     Route: 048
     Dates: end: 20220618
  5. ACTIVATED CHARCOAL\YEAST [Suspect]
     Active Substance: ACTIVATED CHARCOAL\YEAST
     Indication: Diverticulum
     Dosage: 3 DOSAGE FORM, QD
     Route: 048
     Dates: end: 20220620
  6. BILASTINE [Suspect]
     Active Substance: BILASTINE
     Indication: Hypersensitivity
     Dosage: 20 MILLIGRAM, QD
     Route: 048
     Dates: end: 20220618
  7. ALPRAZOLAM [Suspect]
     Active Substance: ALPRAZOLAM
     Indication: Anxiety
     Dosage: 0.38 MILLIGRAM, QD
     Route: 048
     Dates: end: 20220614
  8. METEOSPASMYL (ALVERINE CITRATE\DIMETHICONE) [Suspect]
     Active Substance: ALVERINE CITRATE\DIMETHICONE
     Indication: Diverticulum
     Dosage: 3 DOSAGE FORM, QD
     Route: 065
     Dates: end: 20220618
  9. ALVERINE [Suspect]
     Active Substance: ALVERINE
     Indication: Diverticulum
     Dosage: 3 DOSAGE FORM, QD
     Route: 048
     Dates: end: 20220618
  10. FOLIC ACID [Concomitant]
     Active Substance: FOLIC ACID
     Dosage: 5 MILLIGRAM, Q1HR
     Route: 048
  11. POTASSIUM CHLORIDE [Concomitant]
     Active Substance: POTASSIUM CHLORIDE
     Dosage: 1800 MILLIGRAM, QD
     Route: 048
  12. ACETAMINOPHEN [Concomitant]
     Active Substance: ACETAMINOPHEN
     Dosage: 1 DOSAGE FORM
     Route: 048

REACTIONS (3)
  - Lupus-like syndrome [Recovered/Resolved]
  - Myositis [Recovered/Resolved]
  - Pancytopenia [Recovering/Resolving]

NARRATIVE: CASE EVENT DATE: 20220401
